FAERS Safety Report 9058413 (Version 1)
Quarter: 2013Q1

REPORT INFORMATION
  Report Type: Spontaneous
  Country: US (occurrence: None)
  Receive Date: 20130205
  Receipt Date: 20130205
  Transmission Date: 20140127
  Serious: Yes (Hospitalization)
  Sender: FDA-Public Use
  Company Number: None

PATIENT
  Age: 32 Year
  Sex: Female
  Weight: 97.52 kg

DRUGS (1)
  1. GENOTROPIN [Suspect]
     Route: 058
     Dates: start: 20080221

REACTIONS (4)
  - Dehydration [None]
  - Vomiting [None]
  - Adrenocortical insufficiency acute [None]
  - Drug dose omission [None]
